FAERS Safety Report 14836159 (Version 3)
Quarter: 2018Q3

REPORT INFORMATION
  Report Type: Spontaneous
  Country: US (occurrence: US)
  Receive Date: 20180502
  Receipt Date: 20180702
  Transmission Date: 20181010
  Serious: No
  Sender: FDA-Public Use
  Company Number: US-PFIZER INC-2018175056

PATIENT
  Age: 47 Year
  Sex: Female

DRUGS (14)
  1. ASACOL [Suspect]
     Active Substance: MESALAMINE
     Dosage: UNK
  2. REMICADE [Suspect]
     Active Substance: INFLIXIMAB
     Dosage: UNK
     Dates: start: 2015
  3. IMURAN [Suspect]
     Active Substance: AZATHIOPRINE
     Dosage: UNK
  4. COLAZAL [Suspect]
     Active Substance: BALSALAZIDE DISODIUM
     Dosage: UNK
  5. HUMIRA [Suspect]
     Active Substance: ADALIMUMAB
     Dosage: UNK
  6. SULFASALAZINE. [Suspect]
     Active Substance: SULFASALAZINE
     Dosage: UNK
  7. ADALIMUMAB [Suspect]
     Active Substance: ADALIMUMAB
     Dosage: UNK
  8. THALOMID [Suspect]
     Active Substance: THALIDOMIDE
     Dosage: UNK
  9. ENTOCORT EC [Suspect]
     Active Substance: BUDESONIDE
     Dosage: UNK
  10. DIPENTUM [Suspect]
     Active Substance: OLSALAZINE SODIUM
     Dosage: UNK
  11. WELLBUTRIN [Suspect]
     Active Substance: BUPROPION HYDROCHLORIDE
     Dosage: UNK
  12. METHOTREXATE SODIUM. [Suspect]
     Active Substance: METHOTREXATE SODIUM
     Dosage: UNK
     Dates: start: 2009
  13. ENTYVIO [Suspect]
     Active Substance: VEDOLIZUMAB
     Dosage: UNK
  14. MESALAMINE. [Suspect]
     Active Substance: MESALAMINE
     Dosage: UNK

REACTIONS (1)
  - Drug hypersensitivity [Unknown]
